FAERS Safety Report 5683406-2 (Version None)
Quarter: 2008Q1

REPORT INFORMATION
  Report Type: 
  Country: None (occurrence: None)
  Receive Date: 20080327
  Receipt Date: 20080319
  Transmission Date: 20080703
  Serious: Yes (Other)
  Sender: FDA-Public Use
  Company Number: CA-PFIZER INC-2008025645

PATIENT
  Age: 60 Year
  Sex: Male

DRUGS (1)
  1. DETROL [Suspect]
     Indication: PORPHYRIA
     Dates: start: 20071001, end: 20071001

REACTIONS (1)
  - HYPERSENSITIVITY [None]
